FAERS Safety Report 5519111-2 (Version None)
Quarter: 2007Q4

REPORT INFORMATION
  Report Type: 
  Country: None (occurrence: None)
  Receive Date: 20071114
  Receipt Date: 20071102
  Transmission Date: 20080405
  Serious: Yes (Death)
  Sender: FDA-Public Use
  Company Number: GXKR2007NL09523

PATIENT
  Age: 38 Year
  Sex: Female

DRUGS (1)
  1. MIRTAZAPINE [Suspect]
     Indication: DEPRESSION
     Dosage: 1 DF, QD, ORAL
     Route: 048
     Dates: start: 20070814

REACTIONS (1)
  - COMPLETED SUICIDE [None]
